FAERS Safety Report 5074125-4 (Version None)
Quarter: 2006Q3

REPORT INFORMATION
  Report Type: 
  Country: None (occurrence: None)
  Receive Date: 20060808
  Receipt Date: 20060727
  Transmission Date: 20061208
  Serious: Yes (Life-Threatening)
  Sender: FDA-Public Use
  Company Number: FR-BRISTOL-MYERS SQUIBB COMPANY-13459235

PATIENT
  Age: 60 Year
  Sex: Female
  Weight: 67 kg

DRUGS (3)
  1. TAXOL [Suspect]
     Indication: BREAST CANCER METASTATIC
     Route: 042
     Dates: start: 20060630, end: 20060630
  2. KYTRIL [Suspect]
     Indication: BREAST CANCER METASTATIC
     Dates: start: 20060630, end: 20060630
  3. RANITINE [Suspect]
     Indication: BREAST CANCER METASTATIC
     Dates: start: 20060630, end: 20060630

REACTIONS (4)
  - BACK PAIN [None]
  - CYANOSIS [None]
  - DYSPNOEA [None]
  - FLUSHING [None]
